FAERS Safety Report 4624449-7 (Version None)
Quarter: 2005Q1

REPORT INFORMATION
  Report Type: 
  Country: None (occurrence: None)
  Receive Date: 20050331
  Receipt Date: 20041103
  Transmission Date: 20050727
  Serious: Yes (Other)
  Sender: FDA-Public Use
  Company Number: US-MERCK-0411USA00679

PATIENT
  Age: 78 Year
  Sex: Male

DRUGS (6)
  1. VIOXX [Suspect]
     Indication: OSTEOARTHRITIS
     Route: 048
  2. VIOXX [Suspect]
     Route: 048
     Dates: start: 20021030, end: 20030801
  3. VIOXX [Suspect]
     Route: 048
     Dates: start: 20030801, end: 20040101
  4. VIOXX [Suspect]
     Route: 048
     Dates: start: 20020123, end: 20021029
  5. DARVOCET-N 100 [Concomitant]
     Indication: PAIN
     Route: 065
     Dates: start: 20020123
  6. CELEBREX [Concomitant]
     Indication: PAIN
     Route: 065
     Dates: start: 20020423

REACTIONS (9)
  - BACK PAIN [None]
  - BURSITIS [None]
  - CORONARY ARTERY DISEASE [None]
  - FATIGUE [None]
  - MYALGIA [None]
  - MYOCARDIAL INFARCTION [None]
  - RHINITIS ALLERGIC [None]
  - ROAD TRAFFIC ACCIDENT [None]
  - SPINAL OSTEOARTHRITIS [None]
